FAERS Safety Report 5160937-5 (Version None)
Quarter: 2006Q4

REPORT INFORMATION
  Report Type: 
  Country: None (occurrence: None)
  Receive Date: 20061130
  Receipt Date: 20051205
  Transmission Date: 20070319
  Serious: No
  Sender: FDA-Public Use
  Company Number: US-BRISTOL-MYERS SQUIBB COMPANY-13205208

PATIENT
  Sex: Male

DRUGS (2)
  1. AVALIDE [Suspect]
  2. HYZAAR [Concomitant]

REACTIONS (1)
  - BLOOD PRESSURE INCREASED [None]
